FAERS Safety Report 4288050-X (Version None)
Quarter: 2004Q1

REPORT INFORMATION
  Report Type: 
  Country: None (occurrence: None)
  Receive Date: 20040202
  Receipt Date: 20031117
  Transmission Date: 20041129
  Serious: Yes (Hospitalization)
  Sender: FDA-Public Use
  Company Number: 137727USA

PATIENT
  Age: 31 Year
  Sex: Male
  Weight: 107.5025 kg

DRUGS (1)
  1. COPAXONE [Suspect]
     Indication: MULTIPLE SCLEROSIS
     Dosage: 20 MILLIGRAM QM SUBCUTANEOUS
     Route: 058
     Dates: start: 20030725, end: 20031013

REACTIONS (5)
  - CHEST PAIN [None]
  - CYANOSIS [None]
  - DYSPNOEA [None]
  - HYPOTENSION [None]
  - SWELLING FACE [None]
